FAERS Safety Report 6181271-0 (Version None)
Quarter: 2009Q2

REPORT INFORMATION
  Report Type: 
  Country: None (occurrence: None)
  Receive Date: 20090506
  Receipt Date: 20090427
  Transmission Date: 20091009
  Serious: Yes (Other)
  Sender: FDA-Public Use
  Company Number: GR-PFIZER INC-2009204811

PATIENT

DRUGS (3)
  1. LIPITOR [Suspect]
     Indication: HYPERCHOLESTEROLAEMIA
     Dosage: UNK
     Route: 048
  2. LEVOTHYROXINE [Concomitant]
  3. ESCITALOPRAM [Concomitant]

REACTIONS (2)
  - MUSCLE ATROPHY [None]
  - PARAPLEGIA [None]
